FAERS Safety Report 6021628-1 (Version None)
Quarter: 2008Q4

REPORT INFORMATION
  Report Type: 
  Country: None (occurrence: None)
  Receive Date: 20081222
  Receipt Date: 20081209
  Transmission Date: 20090506
  Serious: Yes (Other)
  Sender: FDA-Public Use
  Company Number: 2008VX002490

PATIENT
  Age: 59 Year
  Sex: Female
  Weight: 47.9906 kg

DRUGS (3)
  1. DIHYDROERGOTAMINE MESYLATE [Suspect]
     Indication: HEADACHE
     Dosage: 3 DF; QD; PO
     Route: 048
     Dates: start: 19840801
  2. CAFERGOT [Suspect]
     Indication: HEADACHE
     Dosage: ; PO
     Route: 048
  3. DICLOFENAC SODIUM [Concomitant]

REACTIONS (1)
  - DRUG ABUSE [None]
